FAERS Safety Report 9971530 (Version 1)
Quarter: 2014Q1

REPORT INFORMATION
  Report Type: Spontaneous
  Country: US (occurrence: None)
  Receive Date: 20140127
  Receipt Date: 20140127
  Transmission Date: 20141002
  Serious: No
  Sender: FDA-Public Use
  Company Number: 1210558

PATIENT
  Age: 45 Year
  Sex: Male

DRUGS (1)
  1. ACTILYSE [Suspect]
     Indication: ARTERIAL OCCLUSIVE DISEASE
     Route: 013

REACTIONS (1)
  - Drug ineffective [None]
